FAERS Safety Report 9505998 (Version 1)
Quarter: 2013Q1

REPORT INFORMATION
  Report Type: Spontaneous
  Country: US (occurrence: None)
  Receive Date: 20130303
  Receipt Date: 20130303
  Transmission Date: 20140127
  Serious: Yes (Other)
  Sender: FDA-Public Use
  Company Number: 2012032171

PATIENT
  Age: 24 Year
  Sex: Female
  Weight: 79.38 kg

DRUGS (1)
  1. VIVAGLOBIN [Suspect]
     Route: 058
     Dates: start: 20080711

REACTIONS (1)
  - Meningitis aseptic [None]
